FAERS Safety Report 6917661-5 (Version None)
Quarter: 2010Q3

REPORT INFORMATION
  Report Type: 
  Country: None (occurrence: None)
  Receive Date: 20100810
  Receipt Date: 20081020
  Transmission Date: 20110219
  Serious: No
  Sender: FDA-Public Use
  Company Number: US-WYE-H06599408

PATIENT
  Sex: Female

DRUGS (1)
  1. PHENERGAN [Suspect]

REACTIONS (1)
  - DRUG HYPERSENSITIVITY [None]
